FAERS Safety Report 5428785-6 (Version None)
Quarter: 2007Q3

REPORT INFORMATION
  Report Type: 
  Country: None (occurrence: None)
  Receive Date: 20070827
  Receipt Date: 20070827
  Transmission Date: 20080115
  Serious: No
  Sender: FDA-Public Use
  Company Number: None

PATIENT
  Age: 51 Year
  Sex: Female
  Weight: 52.1637 kg

DRUGS (1)
  1. ZICAM 20 NASAL SWABS MATRIXX [Suspect]
     Indication: NASOPHARYNGITIS
     Dosage: 1 SWAB EVERY 4 HOURS NASAL
     Route: 045
     Dates: start: 20070823, end: 20070825

REACTIONS (2)
  - ANOSMIA [None]
  - PANIC REACTION [None]
